FAERS Safety Report 14165719 (Version 4)
Quarter: 2018Q1

REPORT INFORMATION
  Report Type: Spontaneous
  Country: GB (occurrence: GB)
  Receive Date: 20171107
  Receipt Date: 20180307
  Transmission Date: 20180508
  Serious: Yes (Other)
  Sender: FDA-Public Use
  Company Number: GB-PFIZER INC-2017471044

PATIENT
  Age: 70 Year
  Sex: Female
  Weight: 52 kg

DRUGS (2)
  1. CRIZOTINIB [Suspect]
     Active Substance: CRIZOTINIB
     Indication: LUNG NEOPLASM MALIGNANT
     Dosage: 250MG, CYCLIC
     Route: 048
     Dates: start: 20140630
  2. CRIZOTINIB [Suspect]
     Active Substance: CRIZOTINIB
     Dosage: UNK, CYCLIC
     Dates: start: 201504

REACTIONS (17)
  - Pyrexia [Unknown]
  - Visual impairment [Unknown]
  - Neutropenia [Unknown]
  - Staphylococcal infection [Recovered/Resolved]
  - Nausea [Recovered/Resolved]
  - Diarrhoea [Unknown]
  - Muscle spasms [Unknown]
  - Dysphagia [Unknown]
  - Decreased appetite [Unknown]
  - Rash [Unknown]
  - Chills [Unknown]
  - Fatigue [Unknown]
  - Neoplasm progression [Unknown]
  - Arthritis [Unknown]
  - Constipation [Recovered/Resolved]
  - Dizziness [Recovered/Resolved]
  - Uveitis [Recovered/Resolved]

NARRATIVE: CASE EVENT DATE: 201706
